FAERS Safety Report 14095339 (Version 1)
Quarter: 2017Q4

REPORT INFORMATION
  Report Type: Spontaneous
  Country: ES (occurrence: ES)
  Receive Date: 20171017
  Receipt Date: 20171017
  Transmission Date: 20180321
  Serious: Yes (Other)
  Sender: FDA-Public Use
  Company Number: ES-ASTRAZENECA-2017SF03049

PATIENT
  Age: 58 Year
  Sex: Female
  Weight: 91 kg

DRUGS (4)
  1. FASLODEX [Suspect]
     Active Substance: FULVESTRANT
     Indication: BREAST CANCER METASTATIC
     Route: 030
     Dates: start: 2017, end: 201709
  2. OMEPRAZOL [Concomitant]
     Active Substance: OMEPRAZOLE
  3. SUMIAL [Concomitant]
     Active Substance: PROPRANOLOL HYDROCHLORIDE
  4. NOVOMIX [Concomitant]
     Active Substance: INSULIN ASPART

REACTIONS (1)
  - Dermatitis allergic [Recovering/Resolving]

NARRATIVE: CASE EVENT DATE: 20170920
